FAERS Safety Report 9335779 (Version 1)
Quarter: 2013Q2

REPORT INFORMATION
  Report Type: Spontaneous
  Country: US (occurrence: US)
  Receive Date: 20130606
  Receipt Date: 20130606
  Transmission Date: 20140414
  Serious: No
  Sender: FDA-Public Use
  Company Number: US-AMGEN-USASP2013032410

PATIENT
  Age: 67 Year
  Sex: Female
  Weight: 78.46 kg

DRUGS (8)
  1. PROLIA [Suspect]
     Indication: OSTEOPOROSIS POSTMENOPAUSAL
     Dosage: 60 MG, Q6MO
     Route: 058
     Dates: start: 20121117
  2. NOVOLOG [Concomitant]
  3. LANTUS [Concomitant]
  4. HYDROCHLOROTHIAZIDE [Concomitant]
  5. GLIPIZIDE [Concomitant]
  6. VITAMIN C                          /00008001/ [Concomitant]
  7. CALCIUM WITH VITAMIN D             /00944201/ [Concomitant]
  8. ALLOPURINOL [Concomitant]

REACTIONS (2)
  - Pain [Unknown]
  - Pain in extremity [Recovering/Resolving]
